FAERS Safety Report 5001943-0 (Version None)
Quarter: 2006Q2

REPORT INFORMATION
  Report Type: 
  Country: None (occurrence: None)
  Receive Date: 20060511
  Receipt Date: 20060511
  Transmission Date: 20061013
  Serious: No
  Sender: FDA-Public Use
  Company Number: None

PATIENT
  Age: 84 Year
  Sex: Male
  Weight: 92.5338 kg

DRUGS (1)
  1. AMIODARONE HCL [Suspect]
     Indication: ARRHYTHMIA
     Dosage: AM - 1     PM 1
     Dates: start: 20060126, end: 20060403

REACTIONS (9)
  - ANOREXIA [None]
  - ASTHENIA [None]
  - CONSTIPATION [None]
  - COORDINATION ABNORMAL [None]
  - COUGH [None]
  - CYANOSIS [None]
  - FEELING COLD [None]
  - TREMOR [None]
  - WEIGHT DECREASED [None]
